FAERS Safety Report 11832425 (Version 1)
Quarter: 2015Q4

REPORT INFORMATION
  Report Type: Spontaneous
  Country: US (occurrence: US)
  Receive Date: 20151214
  Receipt Date: 20151214
  Transmission Date: 20160305
  Serious: Yes (Other)
  Sender: FDA-Public Use
  Company Number: US-PFIZER INC-2015417130

PATIENT
  Sex: Male

DRUGS (1)
  1. VIAGRA [Suspect]
     Active Substance: SILDENAFIL CITRATE
     Indication: PENIS DISORDER
     Dosage: 15 MG HERE AND THERE, BY MOUTH SOMETIMES
     Route: 048
     Dates: start: 201510

REACTIONS (2)
  - Erection increased [Not Recovered/Not Resolved]
  - Semen volume increased [Not Recovered/Not Resolved]

NARRATIVE: CASE EVENT DATE: 20151128
